FAERS Safety Report 9685381 (Version 1)
Quarter: 2013Q4

REPORT INFORMATION
  Report Type: Spontaneous
  Country: US (occurrence: US)
  Receive Date: 20131113
  Receipt Date: 20131113
  Transmission Date: 20140711
  Serious: Yes (Other)
  Sender: FDA-Public Use
  Company Number: US-BAYER-2013-136029

PATIENT
  Age: 20 Year
  Sex: Female

DRUGS (1)
  1. MIRENA [Suspect]
     Indication: CONTRACEPTION
     Dosage: 20 ?G/D, CONT
     Route: 015
     Dates: start: 201105

REACTIONS (8)
  - Convulsion [None]
  - Pain in extremity [None]
  - Abdominal pain upper [None]
  - Pain [None]
  - Hypoaesthesia [None]
  - Eyelid disorder [None]
  - Blindness [None]
  - Vision blurred [None]
